FAERS Safety Report 14832841 (Version 1)
Quarter: 2018Q2

REPORT INFORMATION
  Report Type: Spontaneous
  Country: US (occurrence: US)
  Receive Date: 20180501
  Receipt Date: 20180501
  Transmission Date: 20180711
  Serious: No
  Sender: FDA-Public Use
  Company Number: US-BEH-2018090134

PATIENT
  Sex: Female
  Weight: 101.13 kg

DRUGS (5)
  1. HAEGARDA [Suspect]
     Active Substance: HUMAN C1-ESTERASE INHIBITOR
     Indication: HEREDITARY ANGIOEDEMA
     Dosage: 6000 IU, BIW
     Route: 058
     Dates: start: 20180413
  2. FIRAZYR [Concomitant]
     Active Substance: ICATIBANT ACETATE
  3. MOTRIN [Concomitant]
     Active Substance: IBUPROFEN
  4. EPINEPHRINE. [Concomitant]
     Active Substance: EPINEPHRINE
  5. HAEGARDA [Suspect]
     Active Substance: HUMAN C1-ESTERASE INHIBITOR
     Indication: PROPHYLAXIS

REACTIONS (1)
  - Headache [Unknown]
